FAERS Safety Report 8321921-3 (Version None)
Quarter: 2012Q2

REPORT INFORMATION
  Report Type: 
  Country: None (occurrence: None)
  Receive Date: 20120430
  Receipt Date: 20120426
  Transmission Date: 20120825
  Serious: Yes (Other)
  Sender: FDA-Public Use
  Company Number: ES-ROCHE-1063729

PATIENT
  Age: 48 Year
  Sex: Male

DRUGS (2)
  1. RIBAVIRIN [Suspect]
     Indication: HEPATITIS C
     Dates: end: 20110901
  2. PEGASYS [Suspect]
     Indication: HEPATITIS C
     Dates: end: 20110901

REACTIONS (1)
  - ERECTILE DYSFUNCTION [None]
